FAERS Safety Report 4816738-8 (Version None)
Quarter: 2005Q4

REPORT INFORMATION
  Report Type: 
  Country: None (occurrence: None)
  Receive Date: 20051101
  Receipt Date: 20050801
  Transmission Date: 20060501
  Serious: No
  Sender: FDA-Public Use
  Company Number: US-GLAXOSMITHKLINE-A0568491A

PATIENT
  Age: 54 Year
  Sex: Female

DRUGS (1)
  1. AMOXICILLIN [Suspect]
     Indication: DRUG USE FOR UNKNOWN INDICATION
     Dosage: 500MG TWICE PER DAY
     Route: 048

REACTIONS (6)
  - CHEST PAIN [None]
  - FEELING ABNORMAL [None]
  - SKIN DISORDER [None]
  - THERAPEUTIC RESPONSE UNEXPECTED WITH DRUG SUBSTITUTION [None]
  - VISION BLURRED [None]
  - VISUAL DISTURBANCE [None]
